FAERS Safety Report 19488541 (Version 3)
Quarter: 2021Q4

REPORT INFORMATION
  Report Type: Report from Study
  Country: DE (occurrence: DE)
  Receive Date: 20210702
  Receipt Date: 20211021
  Transmission Date: 20220303
  Serious: Yes (Hospitalization, Other)
  Sender: FDA-Public Use
  Company Number: DE-TAKEDA-2021TUS039929

PATIENT
  Age: 10 Year
  Sex: Female

DRUGS (16)
  1. TEDUGLUTIDE [Suspect]
     Active Substance: TEDUGLUTIDE
     Indication: Short-bowel syndrome
     Dosage: 0.8 MILLIGRAM, QD
     Route: 065
     Dates: start: 20171001, end: 20200825
  2. TEDUGLUTIDE [Suspect]
     Active Substance: TEDUGLUTIDE
     Indication: Short-bowel syndrome
     Dosage: 0.8 MILLIGRAM, QD
     Route: 065
     Dates: start: 20171001, end: 20200825
  3. TEDUGLUTIDE [Suspect]
     Active Substance: TEDUGLUTIDE
     Indication: Short-bowel syndrome
     Dosage: 0.8 MILLIGRAM, QD
     Route: 065
     Dates: start: 20171001, end: 20200825
  4. TEDUGLUTIDE [Suspect]
     Active Substance: TEDUGLUTIDE
     Indication: Short-bowel syndrome
     Dosage: 0.8 MILLIGRAM, QD
     Route: 065
     Dates: start: 20171001, end: 20200825
  5. TEDUGLUTIDE [Suspect]
     Active Substance: TEDUGLUTIDE
     Dosage: 0.9 MILLIGRAM, 1/WEEK
     Route: 065
     Dates: start: 20200826, end: 20210317
  6. TEDUGLUTIDE [Suspect]
     Active Substance: TEDUGLUTIDE
     Dosage: 0.9 MILLIGRAM, 1/WEEK
     Route: 065
     Dates: start: 20200826, end: 20210317
  7. TEDUGLUTIDE [Suspect]
     Active Substance: TEDUGLUTIDE
     Dosage: 0.9 MILLIGRAM, 1/WEEK
     Route: 065
     Dates: start: 20200826, end: 20210317
  8. TEDUGLUTIDE [Suspect]
     Active Substance: TEDUGLUTIDE
     Dosage: 0.9 MILLIGRAM, 1/WEEK
     Route: 065
     Dates: start: 20200826, end: 20210317
  9. GRANULOCYTE COLONY-STIMULATING FACTOR NOS [Concomitant]
     Active Substance: GRANULOCYTE COLONY-STIMULATING FACTOR NOS
     Indication: Neutropenia
     Dosage: 5 MICROGRAM/KILOGRAM, QD
     Route: 058
     Dates: start: 20210616
  10. FLUCYTOSINE [Concomitant]
     Active Substance: FLUCYTOSINE
     Indication: Candida infection
     Dosage: UNK
     Route: 042
     Dates: start: 20210615, end: 20210617
  11. AMPHOTERICIN B [Concomitant]
     Active Substance: AMPHOTERICIN B
     Indication: Pyrexia
     Dosage: UNK
     Route: 042
     Dates: start: 20210615, end: 20210616
  12. GENTAMICIN [Concomitant]
     Active Substance: GENTAMICIN
     Indication: Pyrexia
     Dosage: UNK
     Route: 042
     Dates: start: 20210615, end: 20210616
  13. PANCRELIPASE [Concomitant]
     Active Substance: PANCRELIPASE
     Indication: Dyspepsia
     Dosage: 5000 INTERNATIONAL UNIT, TID
     Route: 048
     Dates: start: 20210915
  14. PANTOPRAZOLE [Concomitant]
     Active Substance: PANTOPRAZOLE
     Indication: Gastric ulcer
     Dosage: 10 MILLIGRAM
     Route: 048
     Dates: start: 20210919
  15. Kalinor [Concomitant]
     Indication: Hypokalaemia
     Dosage: 1 DOSAGE FORM, QD
     Route: 048
     Dates: start: 20210919
  16. ERYTHROPOIETIN [Concomitant]
     Active Substance: ERYTHROPOIETIN
     Indication: Anaemia
     Dosage: 500 INTERNATIONAL UNIT, 1/WEEK
     Route: 058
     Dates: start: 20210828

REACTIONS (3)
  - Sepsis [Recovered/Resolved]
  - Device related sepsis [Recovered/Resolved]
  - Fungal infection [Recovered/Resolved]

NARRATIVE: CASE EVENT DATE: 20201207
